FAERS Safety Report 14390788 (Version 2)
Quarter: 2018Q1

REPORT INFORMATION
  Report Type: Report from Study
  Country: None (occurrence: CA)
  Receive Date: 20180116
  Receipt Date: 20180118
  Transmission Date: 20180509
  Serious: Yes (Other)
  Sender: FDA-Public Use
  Company Number: CA-ABBVIE-18K-028-2222289-00

PATIENT
  Sex: Male

DRUGS (1)
  1. HUMIRA [Suspect]
     Active Substance: ADALIMUMAB
     Indication: ANKYLOSING SPONDYLITIS
     Route: 058
     Dates: start: 20120326

REACTIONS (8)
  - Anogenital warts [Unknown]
  - Malaise [Unknown]
  - Ocular hyperaemia [Unknown]
  - Dry skin [Unknown]
  - Intentional product misuse [Unknown]
  - Papilloma viral infection [Unknown]
  - Skin irritation [Unknown]
  - Oropharyngeal pain [Unknown]
